FAERS Safety Report 23182371 (Version 2)
Quarter: 2023Q4

REPORT INFORMATION
  Report Type: Report from Study
  Country: CN (occurrence: CN)
  Receive Date: 20231114
  Receipt Date: 20231121
  Transmission Date: 20240109
  Serious: Yes (Hospitalization)
  Sender: FDA-Public Use
  Company Number: CN-PFIZER INC-PV202300178406

PATIENT
  Age: 43 Year
  Sex: Male
  Weight: 74.7 kg

DRUGS (3)
  1. INLYTA [Suspect]
     Active Substance: AXITINIB
     Indication: Adenosquamous cell lung cancer stage IV
     Dosage: 5 MG, 2X/DAY (5 MG, BID)
     Route: 048
     Dates: start: 20230829, end: 20230920
  2. INLYTA [Suspect]
     Active Substance: AXITINIB
     Dosage: 5 MG, 2X/DAY (5 MG, BID)
     Route: 048
     Dates: start: 20230920, end: 20231010
  3. INVESTIGATIONAL PRODUCT [Suspect]
     Active Substance: INVESTIGATIONAL PRODUCT
     Indication: Adenosquamous cell lung cancer stage IV
     Dosage: 5 MG/KG (327.5 MG), EVERY 3 WEEKS
     Route: 041
     Dates: start: 20230829, end: 20230920

REACTIONS (2)
  - Aspartate aminotransferase increased [Recovered/Resolved]
  - Alanine aminotransferase increased [Recovered/Resolved]

NARRATIVE: CASE EVENT DATE: 20231010
